FAERS Safety Report 4622207-0 (Version None)
Quarter: 2005Q1

REPORT INFORMATION
  Report Type: 
  Country: None (occurrence: None)
  Receive Date: 20050322
  Receipt Date: 20050322
  Transmission Date: 20050727
  Serious: Yes (Other)
  Sender: FDA-Public Use
  Company Number: None

PATIENT
  Sex: Female
  Weight: 67.7 kg

DRUGS (2)
  1. FLUOROURACIL [Suspect]
     Dosage: 1000MG/M2/DAY IV CONTINUOUS INFUSION DAYS 1-4
     Route: 042
     Dates: start: 20050228
  2. MITOMYCIN [Suspect]
     Dosage: 10MG/M2 IV DAY 1, REPEAT DAY 29
     Route: 042

REACTIONS (2)
  - PERINEAL PAIN [None]
  - SKIN REACTION [None]
